FAERS Safety Report 18013547 (Version 1)
Quarter: 2020Q3

REPORT INFORMATION
  Report Type: Spontaneous
  Country: US (occurrence: US)
  Receive Date: 20200711
  Receipt Date: 20200711
  Transmission Date: 20201103
  Serious: Yes (Other)
  Sender: FDA-Public Use
  Company Number: None

PATIENT
  Age: 65 Year
  Sex: Male
  Weight: 104.33 kg

DRUGS (1)
  1. PURELL [Suspect]
     Active Substance: ALCOHOL

REACTIONS (1)
  - Dizziness [None]
